FAERS Safety Report 11574018 (Version 2)
Quarter: 2015Q4

REPORT INFORMATION
  Report Type: Report from Study
  Country: US (occurrence: US)
  Receive Date: 20150930
  Receipt Date: 20151216
  Transmission Date: 20160304
  Serious: No
  Sender: FDA-Public Use
  Company Number: US-AMGEN-USASP2015097145

PATIENT
  Age: 70 Year
  Sex: Female

DRUGS (4)
  1. ENBREL [Suspect]
     Active Substance: ETANERCEPT
     Indication: RHEUMATOID ARTHRITIS
     Dosage: 50 MG, QWK
     Route: 065
     Dates: start: 20150519
  2. CORTIZONE 10 [Concomitant]
     Active Substance: HYDROCORTISONE
     Dosage: UNK
  3. AVEENO [Concomitant]
     Active Substance: DIMETHICONE\HOMOSALATE\OCTINOXATE\OCTISALATE\TITANIUM DIOXIDE
     Dosage: UNK
  4. ENBREL [Suspect]
     Active Substance: ETANERCEPT
     Dosage: 50 MG, QWK
     Route: 065

REACTIONS (15)
  - Malaise [Unknown]
  - Rash pruritic [Not Recovered/Not Resolved]
  - Injection site erythema [Unknown]
  - Cough [Unknown]
  - Rash macular [Unknown]
  - Skin discolouration [Not Recovered/Not Resolved]
  - Injection site urticaria [Unknown]
  - Injection site reaction [Unknown]
  - Injection site bruising [Unknown]
  - Flushing [Unknown]
  - Nausea [Unknown]
  - Feeling abnormal [Unknown]
  - Insomnia [Unknown]
  - Rash papular [Not Recovered/Not Resolved]
  - Injection site pruritus [Unknown]

NARRATIVE: CASE EVENT DATE: 2015
